FAERS Safety Report 4300589-7 (Version None)
Quarter: 2004Q1

REPORT INFORMATION
  Report Type: 
  Country: None (occurrence: None)
  Receive Date: 20040217
  Receipt Date: 20040209
  Transmission Date: 20041129
  Serious: Yes (Hospitalization, Other)
  Sender: FDA-Public Use
  Company Number: 2003-07-3449

PATIENT
  Age: 25 Year
  Sex: Male

DRUGS (12)
  1. RIBAVIRIN [Suspect]
     Indication: SEVERE ACUTE RESPIRATORY SYNDROME
     Dosage: 2000-400*MG/D ORAL
     Route: 048
     Dates: start: 20030413, end: 20030416
  2. RIBAVIRIN [Suspect]
     Indication: SEVERE ACUTE RESPIRATORY SYNDROME
     Dosage: 2000-400*MG/D ORAL
     Route: 048
     Dates: start: 20030417, end: 20030419
  3. VIRAZOLE [Suspect]
     Indication: SEVERE ACUTE RESPIRATORY SYNDROME
     Dosage: SEE IMAGE
     Route: 042
     Dates: start: 20030409, end: 20030409
  4. VIRAZOLE [Suspect]
     Indication: SEVERE ACUTE RESPIRATORY SYNDROME
     Dosage: SEE IMAGE
     Route: 042
     Dates: start: 20030409, end: 20030412
  5. LEVOFLOXACIN [Concomitant]
  6. LEVOFLOXACIN [Concomitant]
  7. FOLIC ACID TABLETS [Concomitant]
  8. PERDNISONE TABLETS [Concomitant]
  9. PREDNISONE [Concomitant]
  10. PREDNISONE [Concomitant]
  11. PREDNISONE [Concomitant]
  12. SOLU-MEDROL [Concomitant]

REACTIONS (7)
  - ALANINE AMINOTRANSFERASE INCREASED [None]
  - ASPARTATE AMINOTRANSFERASE INCREASED [None]
  - BLOOD BILIRUBIN INCREASED [None]
  - BLOOD CREATINE PHOSPHOKINASE INCREASED [None]
  - BLOOD LACTATE DEHYDROGENASE INCREASED [None]
  - HYPOCALCAEMIA [None]
  - HYPOMAGNESAEMIA [None]
